FAERS Safety Report 25331412 (Version 2)
Quarter: 2025Q2

REPORT INFORMATION
  Report Type: Spontaneous
  Country: CN (occurrence: CN)
  Receive Date: 20250519
  Receipt Date: 20250529
  Transmission Date: 20250716
  Serious: Yes (Life-Threatening, Other)
  Sender: PFIZER
  Company Number: CN-PFIZER INC-PV202500059040

PATIENT
  Age: 51 Year
  Sex: Female

DRUGS (1)
  1. LORLATINIB [Suspect]
     Active Substance: LORLATINIB
     Indication: Non-small cell lung cancer
     Dosage: 100 MG, 1X/DAY
     Route: 048

REACTIONS (7)
  - Cardiac failure [Recovered/Resolved]
  - Acute kidney injury [Not Recovered/Not Resolved]
  - Oedema peripheral [Recovered/Resolved]
  - Pulmonary oedema [Recovering/Resolving]
  - Shock [Recovering/Resolving]
  - Blood pressure increased [Unknown]
  - Lipids increased [Unknown]
